FAERS Safety Report 6198425-X (Version None)
Quarter: 2009Q2

REPORT INFORMATION
  Report Type: 
  Country: None (occurrence: None)
  Receive Date: 20090519
  Receipt Date: 20090506
  Transmission Date: 20091009
  Serious: Yes (Hospitalization)
  Sender: FDA-Public Use
  Company Number: 234233K09USA

PATIENT
  Age: 18 Year
  Sex: Male

DRUGS (1)
  1. REBIF [Suspect]
     Indication: MULTIPLE SCLEROSIS
     Dosage: 44 MCG, 3 IN 1 WEEKS, SUBCUTANEOUS
     Route: 058
     Dates: start: 20090305, end: 20090422

REACTIONS (7)
  - ABASIA [None]
  - ABNORMAL BEHAVIOUR [None]
  - FATIGUE [None]
  - HEADACHE [None]
  - INJECTION SITE IRRITATION [None]
  - PHARYNGITIS STREPTOCOCCAL [None]
  - SPEECH DISORDER [None]
